FAERS Safety Report 12218996 (Version 1)
Quarter: 2016Q1

REPORT INFORMATION
  Report Type: Spontaneous
  Country: US (occurrence: US)
  Receive Date: 20160329
  Receipt Date: 20160329
  Transmission Date: 20160526
  Serious: No
  Sender: FDA-Public Use
  Company Number: GXBR2015US001418

PATIENT
  Age: 67 Year
  Sex: Male
  Weight: 87.75 kg

DRUGS (1)
  1. TERAZOSIN HCL CAPSULES [Suspect]
     Active Substance: TERAZOSIN HYDROCHLORIDE
     Indication: PROSTATOMEGALY
     Dosage: 5 MG, QHS
     Route: 048
     Dates: start: 20150511

REACTIONS (3)
  - Drug ineffective [Not Recovered/Not Resolved]
  - Dysuria [Not Recovered/Not Resolved]
  - Nocturia [Not Recovered/Not Resolved]

NARRATIVE: CASE EVENT DATE: 20150512
